FAERS Safety Report 20798267 (Version 3)
Quarter: 2022Q3

REPORT INFORMATION
  Report Type: Spontaneous
  Country: US (occurrence: US)
  Receive Date: 20220507
  Receipt Date: 20220701
  Transmission Date: 20221027
  Serious: No
  Sender: FDA-Public Use
  Company Number: US-SA-SAC20220504001295

PATIENT
  Age: 38 Year
  Sex: Female

DRUGS (1)
  1. CABLIVI [Suspect]
     Active Substance: CAPLACIZUMAB-YHDP
     Indication: Thrombotic microangiopathy
     Dosage: 11 MG, QD
     Route: 058
     Dates: start: 20220424

REACTIONS (5)
  - Haemoglobin decreased [Unknown]
  - ADAMTS13 activity increased [Unknown]
  - Injection site bruising [Unknown]
  - Heavy menstrual bleeding [Unknown]
  - Product use in unapproved indication [Unknown]

NARRATIVE: CASE EVENT DATE: 20220424
